FAERS Safety Report 13522329 (Version 1)
Quarter: 2017Q2

REPORT INFORMATION
  Report Type: Spontaneous
  Country: US (occurrence: US)
  Receive Date: 20170508
  Receipt Date: 20170508
  Transmission Date: 20170830
  Serious: No
  Sender: FDA-Public Use
  Company Number: US-009507513-1704USA013430

PATIENT
  Age: 27 Year
  Sex: Female

DRUGS (5)
  1. HYDROCORTONE [Suspect]
     Active Substance: HYDROCORTISONE
     Indication: PRIMARY ADRENAL INSUFFICIENCY
     Dosage: 10 MG AT 8 A.M. AND 5 MG AT 3 P.M. DAILY
     Route: 048
  2. FLUDROCORTISONE [Concomitant]
     Active Substance: FLUDROCORTISONE
     Indication: PRIMARY ADRENAL INSUFFICIENCY
     Dosage: 0.1 MG, DAILY
  3. HYDROCORTONE [Suspect]
     Active Substance: HYDROCORTISONE
     Dosage: 10 MG AT 7 A.M. (ON AWAKENING), AND 2.5 MG IN THE AFTERNOO
     Route: 048
  4. FLUDROCORTISONE [Concomitant]
     Active Substance: FLUDROCORTISONE
     Dosage: 0.1 MG, DAILY. OMIT ON TWO NONCONSECUTIVE DAYS EACH WEEK (WEDNESDAY AND SUNDAY)
  5. ETONOGESTREL IMPLANT- UNKNOWN [Concomitant]
     Active Substance: ETONOGESTREL

REACTIONS (3)
  - Increased tendency to bruise [Recovered/Resolved]
  - Muscle atrophy [Recovered/Resolved]
  - Weight increased [Recovered/Resolved]
